FAERS Safety Report 4917667-1 (Version None)
Quarter: 2006Q1

REPORT INFORMATION
  Report Type: 
  Country: None (occurrence: None)
  Receive Date: 20060215
  Receipt Date: 20060123
  Transmission Date: 20060701
  Serious: Yes (Other)
  Sender: FDA-Public Use
  Company Number: 2006US-01574

PATIENT
  Sex: Male

DRUGS (2)
  1. MINOCYCLINE HYDROCHLORIDE [Suspect]
     Dosage: 75 MG, BID, ORAL
     Route: 048
     Dates: start: 20060104, end: 20060120
  2. RETINOL A [Concomitant]

REACTIONS (13)
  - ARTHROPATHY [None]
  - BLOOD COUNT ABNORMAL [None]
  - HYPERBILIRUBINAEMIA [None]
  - HYPERSENSITIVITY [None]
  - JAUNDICE [None]
  - OEDEMA PERIPHERAL [None]
  - PRURITUS [None]
  - PYREXIA [None]
  - RASH [None]
  - RASH GENERALISED [None]
  - SWOLLEN TONGUE [None]
  - URTICARIA [None]
  - VOMITING [None]
